FAERS Safety Report 20324421 (Version 1)
Quarter: 2022Q1

REPORT INFORMATION
  Report Type: Spontaneous
  Country: US (occurrence: US)
  Receive Date: 20220111
  Receipt Date: 20220111
  Transmission Date: 20220423
  Serious: No
  Sender: FDA-Public Use
  Company Number: US-ANIPHARMA-2021-US-000535

PATIENT
  Age: 30 Year
  Sex: Male

DRUGS (1)
  1. FLUVOXAMINE [Suspect]
     Active Substance: FLUVOXAMINE
     Indication: Anxiety
     Dosage: UNKNOWN
     Route: 065

REACTIONS (1)
  - Drug ineffective [Unknown]
